FAERS Safety Report 5890502-3 (Version None)
Quarter: 2008Q3

REPORT INFORMATION
  Report Type: 
  Country: None (occurrence: None)
  Receive Date: 20080918
  Receipt Date: 20080903
  Transmission Date: 20090109
  Serious: Yes (Hospitalization)
  Sender: FDA-Public Use
  Company Number: 1-16600240

PATIENT
  Age: 6 Year
  Sex: Male

DRUGS (1)
  1. PHENYTOIN SODIUM [Suspect]
     Indication: CONVULSION PROPHYLAXIS
     Dosage: ORAL
     Route: 048

REACTIONS (8)
  - ANTINEUTROPHIL CYTOPLASMIC ANTIBODY POSITIVE [None]
  - BONE MARROW FAILURE [None]
  - DRUG RASH WITH EOSINOPHILIA AND SYSTEMIC SYMPTOMS [None]
  - EXFOLIATIVE RASH [None]
  - HAEMOLYTIC ANAEMIA [None]
  - HEPATITIS [None]
  - LYMPHADENOPATHY [None]
  - PERIORBITAL OEDEMA [None]
